FAERS Safety Report 16961271 (Version 1)
Quarter: 2019Q4

REPORT INFORMATION
  Report Type: Spontaneous
  Country: AU (occurrence: AU)
  Receive Date: 20191025
  Receipt Date: 20191025
  Transmission Date: 20200122
  Serious: Yes (Death)
  Sender: FDA-Public Use
  Company Number: AU-ROCHE-2453198

PATIENT
  Age: 65 Year
  Sex: Female

DRUGS (18)
  1. LIGNOCAINE [LIDOCAINE] [Suspect]
     Active Substance: LIDOCAINE
     Indication: MYOCARDITIS
  2. NORADRENALINE [NOREPINEPHRINE] [Concomitant]
     Active Substance: NOREPINEPHRINE
  3. PREDNISONE. [Suspect]
     Active Substance: PREDNISONE
     Indication: VENTRICULAR TACHYCARDIA
     Route: 065
  4. LORATADINE. [Suspect]
     Active Substance: LORATADINE
     Indication: VENTRICULAR TACHYCARDIA
     Route: 065
  5. HYDROCORTISONE. [Suspect]
     Active Substance: HYDROCORTISONE
     Indication: MYOCARDITIS
  6. MYCOPHENOLATE MOFETIL. [Suspect]
     Active Substance: MYCOPHENOLATE MOFETIL
     Indication: MYOCARDITIS
  7. AMIODARONE [Suspect]
     Active Substance: AMIODARONE
     Indication: MYOCARDITIS
  8. ANTITHYMOCYTE IMMUNOGLOBULIN (RABBIT) [Suspect]
     Active Substance: LAPINE T-LYMPHOCYTE IMMUNE GLOBULIN
     Indication: MYOCARDITIS
  9. HYDROCORTISONE. [Suspect]
     Active Substance: HYDROCORTISONE
     Indication: VENTRICULAR TACHYCARDIA
     Route: 065
  10. MYCOPHENOLATE MOFETIL. [Suspect]
     Active Substance: MYCOPHENOLATE MOFETIL
     Indication: VENTRICULAR TACHYCARDIA
     Route: 065
  11. METHYLPREDNISOLONE. [Suspect]
     Active Substance: METHYLPREDNISOLONE
     Indication: VENTRICULAR TACHYCARDIA
     Route: 042
  12. LIGNOCAINE [LIDOCAINE] [Suspect]
     Active Substance: LIDOCAINE
     Indication: VENTRICULAR TACHYCARDIA
     Route: 042
  13. PREDNISONE. [Suspect]
     Active Substance: PREDNISONE
     Indication: MYOCARDITIS
  14. LORATADINE. [Suspect]
     Active Substance: LORATADINE
     Indication: MYOCARDITIS
  15. AMIODARONE [Suspect]
     Active Substance: AMIODARONE
     Indication: VENTRICULAR TACHYCARDIA
     Route: 042
  16. METHYLPREDNISOLONE. [Suspect]
     Active Substance: METHYLPREDNISOLONE
     Indication: MYOCARDITIS
  17. ANTITHYMOCYTE IMMUNOGLOBULIN (RABBIT) [Suspect]
     Active Substance: LAPINE T-LYMPHOCYTE IMMUNE GLOBULIN
     Indication: VENTRICULAR TACHYCARDIA
     Route: 065
  18. VASOPRESSIN. [Concomitant]
     Active Substance: VASOPRESSIN

REACTIONS (1)
  - Oesophageal adenocarcinoma recurrent [Fatal]
